FAERS Safety Report 25755994 (Version 1)
Quarter: 2025Q3

REPORT INFORMATION
  Report Type: Spontaneous
  Country: US (occurrence: None)
  Receive Date: 20250902
  Receipt Date: 20250902
  Transmission Date: 20251020
  Serious: No
  Sender: FDA-CTU
  Company Number: None

PATIENT
  Age: 46 Year
  Sex: Female
  Weight: 104.4 kg

DRUGS (5)
  1. CITALOPRAM [Suspect]
     Active Substance: CITALOPRAM
     Indication: Anxiety
     Dosage: OTHER QUANTITY : 1 TABLET(S);?FREQUENCY : DAILY;?
     Route: 048
     Dates: start: 20121001
  2. CITALOPRAM [Suspect]
     Active Substance: CITALOPRAM
     Indication: Depression
  3. DEVICE [Concomitant]
     Active Substance: DEVICE
  4. VITAMIN D3 [Concomitant]
     Active Substance: CHOLECALCIFEROL
  5. MAGNESIUM GLYCINATE [Concomitant]
     Active Substance: MAGNESIUM GLYCINATE

REACTIONS (11)
  - Electric shock sensation [None]
  - Nausea [None]
  - Dizziness [None]
  - Vision blurred [None]
  - Confusional state [None]
  - Disturbance in attention [None]
  - Migraine [None]
  - Mood altered [None]
  - Therapy change [None]
  - Headache [None]
  - Product dose omission in error [None]
